FAERS Safety Report 6321160-1 (Version None)
Quarter: 2009Q3

REPORT INFORMATION
  Report Type: 
  Country: None (occurrence: None)
  Receive Date: 20090822
  Receipt Date: 20090306
  Transmission Date: 20100115
  Serious: No
  Sender: FDA-Public Use
  Company Number: US-ABBOTT-08P-163-0493703-00

PATIENT
  Sex: Male

DRUGS (11)
  1. NIASPAN [Suspect]
     Indication: HYPERCHOLESTEROLAEMIA
     Dosage: 1000 MG AT BEDTIME
     Route: 048
  2. NIASPAN [Suspect]
     Dosage: 1500MG AT BEDTIME
     Route: 048
     Dates: start: 20081204
  3. LIPITOR [Suspect]
     Indication: DRUG USE FOR UNKNOWN INDICATION
  4. WELCHOL [Suspect]
     Indication: DRUG USE FOR UNKNOWN INDICATION
  5. CRESTOR [Suspect]
     Indication: DRUG USE FOR UNKNOWN INDICATION
  6. CRESTOR [Suspect]
  7. NORTRIPTYLINE HCL [Concomitant]
     Indication: DRUG USE FOR UNKNOWN INDICATION
  8. FISH OIL [Concomitant]
     Indication: DRUG USE FOR UNKNOWN INDICATION
  9. CLARITIN [Concomitant]
     Indication: DRUG USE FOR UNKNOWN INDICATION
  10. ASPIRIN [Concomitant]
     Indication: DRUG USE FOR UNKNOWN INDICATION
  11. BETA BLOCKING AGENTS [Concomitant]
     Indication: DRUG USE FOR UNKNOWN INDICATION

REACTIONS (2)
  - BLOOD CHOLESTEROL INCREASED [None]
  - FLUSHING [None]
